FAERS Safety Report 7703958-8 (Version None)
Quarter: 2011Q3

REPORT INFORMATION
  Report Type: 
  Country: None (occurrence: None)
  Receive Date: 20110823
  Receipt Date: 20110819
  Transmission Date: 20111222
  Serious: Yes (Disabling)
  Sender: FDA-Public Use
  Company Number: GB-TEVA-297444ISR

PATIENT
  Age: 8 Decade
  Sex: Female

DRUGS (1)
  1. SIMAVASTATIN [Suspect]
     Dosage: 40 MILLIGRAM;
     Route: 048
     Dates: start: 20070101

REACTIONS (1)
  - HYPOKALAEMIA [None]
